FAERS Safety Report 7810740-X (Version None)
Quarter: 2011Q4

REPORT INFORMATION
  Report Type: 
  Country: None (occurrence: None)
  Receive Date: 20111006
  Receipt Date: 20110920
  Transmission Date: 20120403
  Serious: Yes (Hospitalization, Other)
  Sender: FDA-Public Use
  Company Number: CIP11000554

PATIENT
  Sex: Female

DRUGS (3)
  1. FOSAMAX [Suspect]
     Indication: OSTEOPOROSIS
     Dosage: 70 MG ONCE WEEKLY, ORAL
     Route: 048
     Dates: start: 20100503, end: 20100721
  2. FOSAMAX [Suspect]
     Indication: OSTEOPOROSIS
     Dosage: 70 MG ONCE WEEKLY, ORAL
     Route: 048
     Dates: start: 19990909
  3. ACTONEL [Suspect]
     Indication: OSTEOPOROSIS
     Dosage: , ORAL
     Route: 048

REACTIONS (7)
  - FEMUR FRACTURE [None]
  - OEDEMA PERIPHERAL [None]
  - CONDITION AGGRAVATED [None]
  - PAIN IN EXTREMITY [None]
  - FALL [None]
  - LIMB DEFORMITY [None]
  - OSTEOPOROSIS [None]
